FAERS Safety Report 5065281-2 (Version None)
Quarter: 2006Q3

REPORT INFORMATION
  Report Type: 
  Country: None (occurrence: None)
  Receive Date: 20060726
  Receipt Date: 20060713
  Transmission Date: 20061208
  Serious: Yes (Other)
  Sender: FDA-Public Use
  Company Number: TRP_0811_2006

PATIENT
  Age: 39 Year
  Sex: Female

DRUGS (15)
  1. RIBASPHERE [Suspect]
     Indication: HEPATITIS C
     Dosage: DF PO
     Route: 048
     Dates: start: 20060428
  2. PEG-INTRON/PEGINTERFERON ALFA-2B [Suspect]
     Indication: HEPATITIS C
     Dosage: DF SC
     Route: 058
     Dates: start: 20060428
  3. AMITRIPTYLINE HYDROCHLORIDE [Concomitant]
  4. BENZTROPINE MESYLATE [Concomitant]
  5. COREG [Concomitant]
  6. CYMBALTA [Concomitant]
  7. GABITRIL FILMTAB [Concomitant]
  8. LITHIUM CARBONATE EXTENDED RELEASE [Concomitant]
  9. PERPHENAZINE [Concomitant]
  10. POTASSIUM CHLORIDE [Concomitant]
  11. PROMETHAZINE HCL [Concomitant]
  12. PROPRANOLOL HYDROCHLORIDE [Concomitant]
  13. TOPAMAX [Concomitant]
  14. TOPROL-XL [Concomitant]
  15. TRAZODONE HCL [Concomitant]

REACTIONS (6)
  - ALOPECIA [None]
  - CONVULSION [None]
  - DEHYDRATION [None]
  - INJECTION SITE REACTION [None]
  - THERMAL BURN [None]
  - VOMITING [None]
